FAERS Safety Report 6272293-X (Version None)
Quarter: 2009Q3

REPORT INFORMATION
  Report Type: 
  Country: None (occurrence: None)
  Receive Date: 20090713
  Receipt Date: 20090304
  Transmission Date: 20100115
  Serious: No
  Sender: FDA-Public Use
  Company Number: 2009BM000055

PATIENT
  Age: 14 Year
  Sex: Female

DRUGS (2)
  1. KUVAN [Suspect]
     Indication: PHENYLKETONURIA
     Dosage: 1200 MG;QD;PO
     Route: 048
     Dates: start: 20080402
  2. ZOLOFT [Concomitant]

REACTIONS (1)
  - DIZZINESS [None]
